FAERS Safety Report 13500379 (Version 1)
Quarter: 2017Q2

REPORT INFORMATION
  Report Type: Spontaneous
  Country: US (occurrence: US)
  Receive Date: 20170501
  Receipt Date: 20170501
  Transmission Date: 20170830
  Serious: No
  Sender: FDA-Public Use
  Company Number: US-AKRIMAX-TIR-2017-0285

PATIENT
  Sex: Female
  Weight: 63.56 kg

DRUGS (3)
  1. CYANOCOBALAMIN (VITAMIN B12) [Concomitant]
     Indication: PRODUCT USED FOR UNKNOWN INDICATION
     Dosage: 1 MILLILITER OF 1000 MCG/ML INJECTION SOLUTION EVERY MONTH
     Route: 030
     Dates: start: 20170214
  2. TIROSINT [Suspect]
     Active Substance: LEVOTHYROXINE SODIUM
     Indication: HYPOTHYROIDISM
     Dosage: 112MCG DAILY
     Dates: start: 20161005
  3. CYTOMEL [Concomitant]
     Active Substance: LIOTHYRONINE SODIUM
     Indication: PRODUCT USED FOR UNKNOWN INDICATION
     Dosage: ONE 5MCG TABLET TWICE DAILY
     Route: 048
     Dates: start: 20161005, end: 20170214

REACTIONS (10)
  - Fatigue [Unknown]
  - Night sweats [Unknown]
  - Thyroid function test abnormal [Unknown]
  - Weight increased [Unknown]
  - Menstrual disorder [Unknown]
  - Chills [Unknown]
  - Thyroxine abnormal [Unknown]
  - Pyrexia [Unknown]
  - Weight decreased [Unknown]
  - Malaise [Unknown]
